FAERS Safety Report 8759552 (Version 6)
Quarter: 2014Q4

REPORT INFORMATION
  Report Type: Spontaneous
  Country: US (occurrence: US)
  Receive Date: 20120829
  Receipt Date: 20141014
  Transmission Date: 20150529
  Serious: Yes (Hospitalization, Disabling, Other)
  Sender: FDA-Public Use
  Company Number: US-009507513-1208USA009467

PATIENT
  Sex: Female

DRUGS (3)
  1. FOSAMAX [Suspect]
     Active Substance: ALENDRONATE SODIUM
     Indication: OSTEOPOROSIS
     Dosage: UNK
     Route: 048
  2. FOSAMAX [Suspect]
     Active Substance: ALENDRONATE SODIUM
     Indication: OSTEOPOROSIS
     Dosage: 10 MG, QD
     Route: 048
     Dates: start: 1997, end: 201206
  3. ALENDRONATE SODIUM. [Suspect]
     Active Substance: ALENDRONATE SODIUM
     Indication: OSTEOPOROSIS
     Dosage: 10 MG, QD
     Route: 048

REACTIONS (24)
  - Syncope [Unknown]
  - Urinary incontinence [Unknown]
  - Back pain [Unknown]
  - Stress fracture [Unknown]
  - Pain [Unknown]
  - Rash [Recovered/Resolved]
  - Gastrooesophageal reflux disease [Unknown]
  - Intramedullary rod insertion [Recovering/Resolving]
  - Femur fracture [Unknown]
  - Low turnover osteopathy [Unknown]
  - Urinary tract infection [Not Recovered/Not Resolved]
  - Femur fracture [Recovering/Resolving]
  - Cholecystectomy [Unknown]
  - Cough [Unknown]
  - Mitral valve prolapse [Unknown]
  - Hypercholesterolaemia [Unknown]
  - Spondylitis [Unknown]
  - Dizziness [Unknown]
  - Osteoporosis [Unknown]
  - Pain [Unknown]
  - Lip pain [Unknown]
  - Tenderness [Unknown]
  - Micturition urgency [Unknown]
  - Tooth fracture [Unknown]

NARRATIVE: CASE EVENT DATE: 2011
